FAERS Safety Report 18144540 (Version 3)
Quarter: 2020Q3

REPORT INFORMATION
  Report Type: Report from Study
  Country: JP (occurrence: JP)
  Receive Date: 20200813
  Receipt Date: 20200930
  Transmission Date: 20201103
  Serious: Yes (Death, Hospitalization, Other)
  Sender: FDA-Public Use
  Company Number: PHJP2019JP001266

PATIENT
  Age: 81 Year
  Sex: Male
  Weight: 61.7 kg

DRUGS (29)
  1. ATARAX [Concomitant]
     Active Substance: HYDROXYZINE HYDROCHLORIDE
     Dosage: 50 MG
     Route: 048
     Dates: end: 20200117
  2. SEIBULE [Concomitant]
     Active Substance: MIGLITOL
     Indication: DIABETES MELLITUS
     Dosage: 150 MG
     Route: 048
     Dates: end: 20200117
  3. PROPETO [Concomitant]
     Active Substance: PETROLATUM
     Indication: PSORIASIS
     Dosage: PROPER DOSE
     Route: 061
     Dates: start: 20190809, end: 20200120
  4. OTEZLA [Concomitant]
     Active Substance: APREMILAST
     Dosage: 10 MG, QD
     Route: 048
     Dates: start: 20191013, end: 20191013
  5. COSENTYX [Suspect]
     Active Substance: SECUKINUMAB
     Dosage: 300 MG, 4W
     Route: 058
     Dates: start: 20180801, end: 20190605
  6. ALLELOCK [Concomitant]
     Active Substance: OLOPATADINE HYDROCHLORIDE
     Indication: PSORIASIS
     Dosage: 10 MG
     Route: 048
     Dates: end: 20180531
  7. GLUFAST [Concomitant]
     Active Substance: MITIGLINIDE
     Indication: DIABETES MELLITUS
     Dosage: 15 MG, UNK
     Route: 048
     Dates: end: 20200117
  8. COSENTYX [Suspect]
     Active Substance: SECUKINUMAB
     Indication: PSORIASIS
     Dosage: 300 MG, QW
     Route: 058
     Dates: start: 20180601, end: 20180629
  9. ATARAX [Concomitant]
     Active Substance: HYDROXYZINE HYDROCHLORIDE
     Indication: PSORIASIS
     Dosage: 50 MG
     Route: 048
     Dates: start: 20180608, end: 20180614
  10. ATARAX [Concomitant]
     Active Substance: HYDROXYZINE HYDROCHLORIDE
     Dosage: 50 MG
     Route: 048
     Dates: start: 20180615
  11. ANTEBATE [Concomitant]
     Active Substance: BETAMETHASONE DIPROPIONATE
     Indication: PSORIASIS
     Dosage: PROPER DOSE
     Route: 061
     Dates: end: 20200118
  12. NEXIUM [Concomitant]
     Active Substance: ESOMEPRAZOLE MAGNESIUM
     Indication: PROPHYLAXIS
     Dosage: 10 MG
     Route: 048
     Dates: end: 20200117
  13. NESP [Concomitant]
     Active Substance: DARBEPOETIN ALFA
     Indication: NEPHROGENIC ANAEMIA
     Dosage: 240 UG, QMO
     Route: 065
     Dates: end: 20200117
  14. OTEZLA [Concomitant]
     Active Substance: APREMILAST
     Indication: PSORIASIS
     Dosage: 10 MG, QD AFTER BREAKFAST
     Route: 048
     Dates: start: 20191011, end: 20191011
  15. OTEZLA [Concomitant]
     Active Substance: APREMILAST
     Dosage: 30 MG, BID
     Route: 048
     Dates: start: 20191016, end: 20191024
  16. ALLELOCK [Concomitant]
     Active Substance: OLOPATADINE HYDROCHLORIDE
     Dosage: 5 MG, UNK
     Route: 048
     Dates: start: 20180601, end: 20180607
  17. HIRUDOID [Concomitant]
     Active Substance: GLYCOSAMINOGLYCANS
     Indication: PSORIASIS
     Dosage: PROPER DOSE
     Route: 061
     Dates: end: 20200118
  18. OTEZLA [Concomitant]
     Active Substance: APREMILAST
     Dosage: 20 MG, QD
     Route: 048
     Dates: start: 20191013, end: 20191013
  19. OTEZLA [Concomitant]
     Active Substance: APREMILAST
     Dosage: 20 MG, BID
     Route: 048
     Dates: start: 20191014, end: 20191014
  20. AMLODIPINE [Concomitant]
     Active Substance: AMLODIPINE BESYLATE
     Indication: HYPERTENSION
     Dosage: 5 MG
     Route: 048
     Dates: start: 20181005, end: 20200117
  21. BAYASPIRIN [Concomitant]
     Active Substance: ASPIRIN
     Indication: MYOCARDIAL INFARCTION
     Dosage: 100 MG
     Route: 048
     Dates: end: 20200117
  22. OTEZLA [Concomitant]
     Active Substance: APREMILAST
     Dosage: 10 MG, BID
     Route: 048
     Dates: start: 20191012, end: 20191012
  23. OTEZLA [Concomitant]
     Active Substance: APREMILAST
     Dosage: 20 MG, QD
     Route: 048
     Dates: start: 20191015, end: 20191015
  24. OTEZLA [Concomitant]
     Active Substance: APREMILAST
     Dosage: UNK
     Route: 048
     Dates: end: 20200117
  25. FEBURIC [Concomitant]
     Active Substance: FEBUXOSTAT
     Indication: HYPERURICAEMIA
     Dosage: 10 MG
     Route: 048
     Dates: start: 20180427, end: 20200117
  26. ECARD [Concomitant]
     Active Substance: CANDESARTAN CILEXETIL\HYDROCHLOROTHIAZIDE
     Indication: HYPERTENSION
     Dosage: 1 DF, UNK
     Route: 048
     Dates: end: 20180929
  27. NICORANDIL [Concomitant]
     Active Substance: NICORANDIL
     Indication: HYPERTENSION
     Dosage: 15 MG
     Route: 048
     Dates: end: 20200117
  28. ARGAMATE [Concomitant]
     Active Substance: CALCIUM POLYSTYRENE SULFONATE
     Indication: HYPERKALAEMIA
     Dosage: 75 G
     Route: 048
     Dates: start: 20180829, end: 20200117
  29. OTEZLA [Concomitant]
     Active Substance: APREMILAST
     Dosage: 30 MG, QD
     Route: 048
     Dates: start: 20191015, end: 20191015

REACTIONS (6)
  - Pneumonia bacterial [Fatal]
  - Haematochezia [Recovered/Resolved]
  - Diverticulum intestinal haemorrhagic [Recovered/Resolved]
  - Drug ineffective [Unknown]
  - Hyperkalaemia [Not Recovered/Not Resolved]
  - Pneumonia bacterial [Recovered/Resolved]

NARRATIVE: CASE EVENT DATE: 20180708
